FAERS Safety Report 14063732 (Version 1)
Quarter: 2017Q4

REPORT INFORMATION
  Report Type: Spontaneous
  Country: DE (occurrence: DE)
  Receive Date: 20171009
  Receipt Date: 20171009
  Transmission Date: 20180321
  Serious: Yes (Congenital Anomaly, Other)
  Sender: FDA-Public Use
  Company Number: GXKR2017DE004894

PATIENT
  Sex: Male
  Weight: 3.19 kg

DRUGS (8)
  1. VENLAFAXINE [Suspect]
     Active Substance: VENLAFAXINE HYDROCHLORIDE
     Dosage: MATERNAL DOSE: 150 MG, QD FROM GW 28
     Route: 064
     Dates: end: 20170312
  2. HUMINSULIN BASAL [Concomitant]
     Active Substance: INSULIN NOS
     Indication: FOETAL EXPOSURE DURING PREGNANCY
     Dosage: MATERNAL DOSE: 10 IE, QD
     Route: 064
  3. HUMINSULIN NORMAL [Concomitant]
     Indication: FOETAL EXPOSURE DURING PREGNANCY
     Dosage: MATERNAL DOSE: 42 IE, QD
     Route: 064
  4. IBUPROFEN. [Concomitant]
     Active Substance: IBUPROFEN
     Indication: FOETAL EXPOSURE DURING PREGNANCY
     Dosage: MATERNAL DOSE
     Route: 064
     Dates: start: 20160928, end: 20160929
  5. FOLIO FORTE [Concomitant]
     Active Substance: FOLIC ACID\VITAMINS
     Indication: FOETAL EXPOSURE DURING PREGNANCY
     Dosage: MATERNAL DOSE: 0.8 MG, QD
     Route: 064
  6. VENLAFAXINE [Suspect]
     Active Substance: VENLAFAXINE HYDROCHLORIDE
     Indication: FOETAL EXPOSURE DURING PREGNANCY
     Dosage: MATERNAL DOSE: 112.5 MG, QW
     Route: 064
     Dates: start: 20160608
  7. VOMEX A [Concomitant]
     Active Substance: DIMENHYDRINATE
     Indication: FOETAL EXPOSURE DURING PREGNANCY
     Dosage: MATERNAL DOSE
     Route: 064
     Dates: start: 20170928, end: 20170929
  8. AMPICILLIN [Concomitant]
     Active Substance: AMPICILLIN
     Indication: FOETAL EXPOSURE DURING PREGNANCY
     Dosage: MATERNAL DOSE
     Route: 064

REACTIONS (3)
  - Drug withdrawal syndrome neonatal [Recovered/Resolved]
  - Congenital skin dimples [Not Recovered/Not Resolved]
  - Foetal exposure during pregnancy [Unknown]
